FAERS Safety Report 10623790 (Version 1)
Quarter: 2014Q4

REPORT INFORMATION
  Report Type: Spontaneous
  Country: US (occurrence: US)
  Receive Date: 20141203
  Receipt Date: 20141203
  Transmission Date: 20150529
  Serious: No
  Sender: FDA-Public Use
  Company Number: US-SA-2013SA135223

PATIENT
  Age: 91 Year
  Sex: Female

DRUGS (2)
  1. RENVELA [Suspect]
     Active Substance: SEVELAMER CARBONATE
     Indication: HYPERPHOSPHATAEMIA
     Dosage: 2-3 MEALS PER DAY
     Route: 048
     Dates: start: 201308
  2. RENVELA [Suspect]
     Active Substance: SEVELAMER CARBONATE
     Indication: HYPERPHOSPHATAEMIA
     Dosage: 3 TABLETS PER MEAL
     Route: 048
     Dates: start: 2013

REACTIONS (2)
  - Hyperphosphataemia [Unknown]
  - Blood calcium increased [Unknown]

NARRATIVE: CASE EVENT DATE: 2013
